FAERS Safety Report 9093799 (Version 1)
Quarter: 2013Q1

REPORT INFORMATION
  Report Type: Spontaneous
  Country: US (occurrence: US)
  Receive Date: 20130201
  Receipt Date: 20130201
  Transmission Date: 20140127
  Serious: Yes (Other)
  Sender: FDA-Public Use
  Company Number: US-JNJFOC-20130115623

PATIENT
  Sex: Male

DRUGS (1)
  1. NUCYNTA [Suspect]
     Indication: NEURALGIA
     Route: 065

REACTIONS (4)
  - Drug dependence [Unknown]
  - Personality change [Unknown]
  - Weight decreased [Unknown]
  - Decreased appetite [Unknown]
